FAERS Safety Report 9000647 (Version 1)
Quarter: 2012Q4

REPORT INFORMATION
  Report Type: Spontaneous
  Country: DE (occurrence: None)
  Receive Date: 20121226
  Receipt Date: 20121226
  Transmission Date: 20130627
  Serious: Yes (Other)
  Sender: FDA-Public Use
  Company Number: DSA_61516_2012

PATIENT
  Age: 28 Year
  Sex: Female

DRUGS (3)
  1. ELONTRIL [Suspect]
     Indication: BIPOLAR DISORDER
     Dosage: (DF)
     Route: 048
     Dates: start: 20121111, end: 20121119
  2. SEROQUEL [Concomitant]
  3. CYMBALTA [Concomitant]

REACTIONS (20)
  - Nausea [None]
  - Ocular hypertension [None]
  - Vomiting [None]
  - Illusion [None]
  - Visual impairment [None]
  - Libido increased [None]
  - Night sweats [None]
  - Headache [None]
  - Dizziness [None]
  - Confusional state [None]
  - Tinnitus [None]
  - Anxiety [None]
  - Hot flush [None]
  - Bruxism [None]
  - Condition aggravated [None]
  - Derealisation [None]
  - Nervousness [None]
  - Irritability [None]
  - Aggression [None]
  - Bedridden [None]
